FAERS Safety Report 6654170-5 (Version None)
Quarter: 2010Q1

REPORT INFORMATION
  Report Type: 
  Country: None (occurrence: None)
  Receive Date: 20100326
  Receipt Date: 20100315
  Transmission Date: 20100710
  Serious: No
  Sender: FDA-Public Use
  Company Number: US-B.I. PHARMACEUTICALS,INC./RIDGEFIELD-2010-BP-03022BP

PATIENT
  Age: 50 Year
  Sex: Male

DRUGS (7)
  1. FLOMAX [Suspect]
     Indication: PROSTATOMEGALY
     Dosage: 0.4 MG
     Route: 048
     Dates: start: 20070101
  2. DIAZEPAM [Concomitant]
     Indication: SCOLIOSIS
  3. DIAZEPAM [Concomitant]
     Indication: SOCIAL PHOBIA
  4. CYCLOBENZAPRINE [Concomitant]
     Indication: INTERVERTEBRAL DISC DEGENERATION
  5. CYCLOBENZAPRINE [Concomitant]
     Indication: SCIATICA
  6. NEXIUM [Concomitant]
     Indication: GASTRIC DISORDER
  7. CELEBREX [Concomitant]
     Indication: INTERVERTEBRAL DISC DEGENERATION

REACTIONS (2)
  - DYSURIA [None]
  - THERAPEUTIC REACTION TIME DECREASED [None]
